FAERS Safety Report 4679250-5 (Version None)
Quarter: 2005Q2

REPORT INFORMATION
  Report Type: 
  Country: None (occurrence: None)
  Receive Date: 20050531
  Receipt Date: 20050531
  Transmission Date: 20051028
  Serious: Yes (Hospitalization, Disabling)
  Sender: FDA-Public Use
  Company Number: None

PATIENT
  Sex: Female
  Weight: 68.0396 kg

DRUGS (3)
  1. SEROQUEL [Suspect]
     Indication: ANXIETY DISORDER
     Dosage: 800 MG DAILY
     Dates: start: 20000101, end: 20050201
  2. SEROQUEL [Suspect]
     Indication: SCHIZOAFFECTIVE DISORDER
     Dosage: 800 MG DAILY
     Dates: start: 20000101, end: 20050201
  3. DEPAKOTE [Concomitant]

REACTIONS (6)
  - AGGRESSION [None]
  - CEREBROVASCULAR ACCIDENT [None]
  - DRUG EXPOSURE DURING PREGNANCY [None]
  - HYPERTENSION [None]
  - MYOCARDIAL INFARCTION [None]
  - PREGNANCY [None]
